FAERS Safety Report 23304002 (Version 1)
Quarter: 2023Q4

REPORT INFORMATION
  Report Type: Spontaneous
  Country: US (occurrence: US)
  Receive Date: 20231215
  Receipt Date: 20231215
  Transmission Date: 20240109
  Serious: No
  Sender: FDA-Public Use
  Company Number: US-BAYER-2023A179382

PATIENT

DRUGS (1)
  1. NEXAVAR [Suspect]
     Active Substance: SORAFENIB
     Dosage: UNK

REACTIONS (1)
  - White blood cell count decreased [None]
